FAERS Safety Report 9858512 (Version 1)
Quarter: 2014Q1

REPORT INFORMATION
  Report Type: Spontaneous
  Country: US (occurrence: None)
  Receive Date: 20140130
  Receipt Date: 20140130
  Transmission Date: 20141002
  Serious: No
  Sender: FDA-Public Use
  Company Number: None

PATIENT
  Age: 62 Year
  Sex: Male
  Weight: 73.6 kg

DRUGS (1)
  1. TELAPREVIR [Suspect]
     Indication: HEPATITIS C
     Route: 048
     Dates: start: 20131007, end: 20131210

REACTIONS (7)
  - Drug eruption [None]
  - Psoriasis [None]
  - Urticaria [None]
  - Pruritus [None]
  - Eosinophilia [None]
  - Laboratory test interference [None]
  - Rash erythematous [None]
